FAERS Safety Report 9325539 (Version 1)
Quarter: 2013Q2

REPORT INFORMATION
  Report Type: Spontaneous
  Country: US (occurrence: None)
  Receive Date: 20130531
  Receipt Date: 20130531
  Transmission Date: 20140414
  Serious: Yes (Other)
  Sender: FDA-Public Use
  Company Number: None

PATIENT
  Sex: Male

DRUGS (1)
  1. CALCIUM GLUCONATE [Suspect]

REACTIONS (4)
  - Muscle spasms [None]
  - Muscle spasms [None]
  - Muscle spasms [None]
  - No adverse event [None]
